FAERS Safety Report 5460900-0 (Version None)
Quarter: 2007Q3

REPORT INFORMATION
  Report Type: 
  Country: None (occurrence: None)
  Receive Date: 20070827
  Receipt Date: 20060919
  Transmission Date: 20080115
  Serious: Yes (Other)
  Sender: FDA-Public Use
  Company Number: 2006113133

PATIENT
  Age: 16 Year
  Sex: Female

DRUGS (2)
  1. VFEND [Suspect]
     Indication: FUNGAL INFECTION
     Dosage: 2500 MG (1250 MG, 2 IN 1 D), ORAL
     Route: 048
     Dates: start: 20060101, end: 20060914
  2. DRUG, UNSPECIFIED (DRUG, UNSPECIFIED) [Concomitant]

REACTIONS (1)
  - CONVULSION [None]
